FAERS Safety Report 11098380 (Version 1)
Quarter: 2015Q2

REPORT INFORMATION
  Report Type: Spontaneous
  Country: BR (occurrence: BR)
  Receive Date: 20150507
  Receipt Date: 20150507
  Transmission Date: 20150821
  Serious: Yes (Hospitalization)
  Sender: FDA-Public Use
  Company Number: BR-009507513-1504BRA002111

PATIENT
  Sex: Male

DRUGS (1)
  1. DESALEX D12 [Suspect]
     Active Substance: DESLORATADINE\PSEUDOEPHEDRINE SULFATE
     Dosage: UNK
     Route: 048
     Dates: start: 20150401

REACTIONS (4)
  - Nephrolithiasis [Unknown]
  - Chromaturia [Unknown]
  - Pain [Unknown]
  - Abdominal pain [Unknown]

NARRATIVE: CASE EVENT DATE: 201504
